FAERS Safety Report 8458805-6 (Version None)
Quarter: 2012Q2

REPORT INFORMATION
  Report Type: 
  Country: None (occurrence: None)
  Receive Date: 20120622
  Receipt Date: 20120614
  Transmission Date: 20120825
  Serious: Yes (Hospitalization)
  Sender: FDA-Public Use
  Company Number: US-MPIJNJ-2012-02228

PATIENT
  Sex: Female
  Weight: 77.551 kg

DRUGS (10)
  1. RITUXIMAB [Suspect]
     Indication: RENAL TRANSPLANT
     Dosage: 375 MG/M2, CYCLIC
     Route: 042
     Dates: start: 20120124, end: 20120124
  2. EPOETIN [Concomitant]
     Indication: PRODUCT USED FOR UNKNOWN INDICATION
     Dosage: 9000 UNK, UNK
     Route: 042
  3. VELCADE [Suspect]
     Indication: RENAL TRANSPLANT
     Dosage: 1.3 MG/M2, CYCLIC
     Route: 042
     Dates: start: 20120131, end: 20120221
  4. PANTOPRAZOLE [Concomitant]
     Indication: PRODUCT USED FOR UNKNOWN INDICATION
     Dosage: 40 MG, QD
     Route: 048
  5. NEPHROCAPS [Concomitant]
     Indication: PRODUCT USED FOR UNKNOWN INDICATION
     Dosage: 1 MG, QD
     Route: 048
  6. CALCIUM ACETATE [Concomitant]
     Indication: PRODUCT USED FOR UNKNOWN INDICATION
     Dosage: 667 MG, QD
     Route: 048
  7. METOPROLOL [Concomitant]
     Indication: PRODUCT USED FOR UNKNOWN INDICATION
     Dosage: 50 MG, BID
     Route: 048
  8. GABAPENTIN [Concomitant]
     Indication: PRODUCT USED FOR UNKNOWN INDICATION
     Dosage: 300 MG, QD
     Route: 048
  9. NASONEX [Concomitant]
     Indication: PRODUCT USED FOR UNKNOWN INDICATION
     Dosage: UNK
     Route: 045
  10. ESTRADERM [Concomitant]
     Indication: PRODUCT USED FOR UNKNOWN INDICATION
     Dosage: 0.1 UNK, 2/WEEK

REACTIONS (7)
  - HYPOAESTHESIA [None]
  - HAEMOGLOBIN DECREASED [None]
  - BLOOD CREATININE INCREASED [None]
  - CHEST PAIN [None]
  - MITRAL VALVE INCOMPETENCE [None]
  - BRAIN NATRIURETIC PEPTIDE INCREASED [None]
  - PLATELET COUNT DECREASED [None]
